FAERS Safety Report 24947597 (Version 1)
Quarter: 2025Q1

REPORT INFORMATION
  Report Type: Report from Study
  Country: IN (occurrence: IN)
  Receive Date: 20250210
  Receipt Date: 20250210
  Transmission Date: 20250409
  Serious: Yes (Hospitalization)
  Sender: ROCHE
  Company Number: IN-ROCHE-10000198369

PATIENT
  Sex: Female

DRUGS (1)
  1. ACTEMRA [Suspect]
     Active Substance: TOCILIZUMAB
     Indication: Rheumatoid arthritis
     Dosage: NA
     Route: 058
     Dates: start: 20220819

REACTIONS (2)
  - Rheumatoid arthritis [Recovered/Resolved with Sequelae]
  - Pain [Recovered/Resolved with Sequelae]
